FAERS Safety Report 5989610-8 (Version None)
Quarter: 2008Q4

REPORT INFORMATION
  Report Type: 
  Country: None (occurrence: None)
  Receive Date: 20081208
  Receipt Date: 20081128
  Transmission Date: 20090506
  Serious: Yes (Hospitalization)
  Sender: FDA-Public Use
  Company Number: MSTR-NO-0809S-0072

PATIENT
  Age: 58 Year
  Sex: Male
  Weight: 83.5 kg

DRUGS (2)
  1. METASTRON [Suspect]
     Indication: METASTATIC PAIN
     Dosage: 3.8 ML, SINGLE DOSE, I.V.
     Route: 042
     Dates: start: 20080318, end: 20080318
  2. AMRUBICIN [Concomitant]

REACTIONS (8)
  - ANAEMIA [None]
  - ASTHENIA [None]
  - BACK PAIN [None]
  - CONDITION AGGRAVATED [None]
  - METASTATIC PAIN [None]
  - MUSCLE DISORDER [None]
  - SENSORY DISTURBANCE [None]
  - ULCER [None]
